FAERS Safety Report 16802878 (Version 1)
Quarter: 2019Q3

REPORT INFORMATION
  Report Type: Report from Study
  Country: FR (occurrence: FR)
  Receive Date: 20190913
  Receipt Date: 20190913
  Transmission Date: 20191005
  Serious: Yes (Other)
  Sender: FDA-Public Use
  Company Number: FR-ROCHE-2404298

PATIENT

DRUGS (3)
  1. CYCLOPHOSPHAMIDE. [Suspect]
     Active Substance: CYCLOPHOSPHAMIDE
     Indication: CHRONIC LYMPHOCYTIC LEUKAEMIA
     Route: 065
  2. RITUXIMAB. [Suspect]
     Active Substance: RITUXIMAB
     Indication: CHRONIC LYMPHOCYTIC LEUKAEMIA
     Route: 065
  3. FLUDARABINE [Suspect]
     Active Substance: FLUDARABINE PHOSPHATE
     Indication: CHRONIC LYMPHOCYTIC LEUKAEMIA
     Route: 065

REACTIONS (15)
  - Breast cancer [Unknown]
  - Colorectal cancer [Unknown]
  - Erdheim-Chester disease [Unknown]
  - Oropharyngeal cancer [Unknown]
  - Infection [Unknown]
  - Diffuse large B-cell lymphoma [Unknown]
  - Acute myeloid leukaemia [Unknown]
  - Anaplastic large-cell lymphoma [Unknown]
  - Opportunistic infection [Unknown]
  - Myelodysplastic syndrome [Unknown]
  - Hodgkin^s disease [Unknown]
  - Plasma cell myeloma [Unknown]
  - Skin cancer [Unknown]
  - Lung neoplasm malignant [Unknown]
  - Prostate cancer [Unknown]
